FAERS Safety Report 20784600 (Version 4)
Quarter: 2022Q3

REPORT INFORMATION
  Report Type: Spontaneous
  Country: CA (occurrence: CA)
  Receive Date: 20220504
  Receipt Date: 20220818
  Transmission Date: 20221027
  Serious: Yes (Other)
  Sender: FDA-Public Use
  Company Number: CA-PFIZER INC-202200532469

PATIENT
  Age: 87 Year
  Sex: Female
  Weight: 59.5 kg

DRUGS (6)
  1. BRAFTOVI [Suspect]
     Active Substance: ENCORAFENIB
     Dosage: 300 MG, 1X/DAY
     Route: 048
     Dates: start: 20210823
  2. CETUXIMAB [Concomitant]
     Active Substance: CETUXIMAB
     Dosage: 36.5 MG OVER 60 MIN OF DAYS 1, 8 15 AND 21
     Route: 042
  3. CETUXIMAB [Concomitant]
     Active Substance: CETUXIMAB
     Dosage: 370 MG ,UNDILUTED OVER 60 MIN OF DAYS 1, 8 15 AND 22
     Route: 042
  4. DEXAMETHASONE [Concomitant]
     Active Substance: DEXAMETHASONE
     Indication: Premedication
     Dosage: 8 MG IV OR PO, DAYS 1, 8, 15 AND 22
  5. DIPHENHYDRAMINE [Concomitant]
     Active Substance: DIPHENHYDRAMINE
     Indication: Premedication
     Dosage: 50 MG, DAYS 1, 8, 15 AND 22
     Route: 042
  6. MAGNESIUM SULFATE [Concomitant]
     Active Substance: MAGNESIUM SULFATE
     Dosage: 4 G, 100 CC NS OVER MIN PROOR TO ECH CETUXIMAB
     Route: 042

REACTIONS (2)
  - Herpes ophthalmic [Unknown]
  - Weight increased [Unknown]

NARRATIVE: CASE EVENT DATE: 20220503
